FAERS Safety Report 8702666 (Version 3)
Quarter: 2012Q4

REPORT INFORMATION
  Report Type: 
  Country: US (occurrence: US)
  Receive Date: 20120803
  Receipt Date: 20120905
  Transmission Date: 20130627
  Serious: No
  Sender: FDA-Public Use
  Company Number: US-ALEXION PHARMACEUTICALS INC.-A201201404

PATIENT
  Sex: Female
  Weight: 87.98 kg

DRUGS (3)
  1. SOLIRIS 300MG [Suspect]
     Indication: PAROXYSMAL NOCTURNAL HAEMOGLOBINURIA
     Dosage: 900 mg, q2w
     Route: 042
  2. FOLIC ACID [Concomitant]
     Dosage: UNK
  3. APRISO [Concomitant]
     Dosage: UNK

REACTIONS (4)
  - Complement factor decreased [Unknown]
  - Antinuclear antibody positive [Not Recovered/Not Resolved]
  - False positive investigation result [Unknown]
  - Arthralgia [Unknown]
